FAERS Safety Report 16007028 (Version 9)
Quarter: 2023Q1

REPORT INFORMATION
  Report Type: Spontaneous
  Country: GB (occurrence: GB)
  Receive Date: 20190226
  Receipt Date: 20230207
  Transmission Date: 20230418
  Serious: Yes (Life-Threatening, Hospitalization, Other)
  Sender: FDA-Public Use
  Company Number: PHHY2019GB041338

PATIENT
  Age: 69 Year
  Sex: Female

DRUGS (114)
  1. PACLITAXEL [Suspect]
     Active Substance: PACLITAXEL
     Indication: Breast cancer metastatic
     Dosage: 138 MG, Q4W
     Route: 042
     Dates: start: 20151203, end: 20160203
  2. PACLITAXEL [Suspect]
     Active Substance: PACLITAXEL
     Dosage: 139 MG, Q4W
     Route: 042
     Dates: start: 20151210
  3. PACLITAXEL [Suspect]
     Active Substance: PACLITAXEL
     Dosage: 120 MG, QMO (EVERY 4 WEEKS)
     Route: 042
     Dates: start: 20160204, end: 20160218
  4. PACLITAXEL [Suspect]
     Active Substance: PACLITAXEL
     Dosage: 102 MG, Q4W
     Route: 042
     Dates: start: 20160204, end: 20160218
  5. PACLITAXEL [Suspect]
     Active Substance: PACLITAXEL
     Dosage: 102 MG (DRUG INTERVAL 4 WEEK)
     Route: 065
     Dates: start: 20160204, end: 20160218
  6. PACLITAXEL [Suspect]
     Active Substance: PACLITAXEL
     Dosage: 68 MG, QW
     Route: 042
     Dates: start: 20160303, end: 20160310
  7. PACLITAXEL [Suspect]
     Active Substance: PACLITAXEL
     Dosage: 120 MG, QMO (EVERY 4 WEEKS)
     Route: 042
     Dates: start: 20151210
  8. PACLITAXEL [Suspect]
     Active Substance: PACLITAXEL
     Dosage: 134 MG, Q4W
     Route: 042
     Dates: start: 20151210
  9. PACLITAXEL [Suspect]
     Active Substance: PACLITAXEL
     Dosage: 139 MG, Q4W
     Route: 042
     Dates: start: 20151210
  10. PACLITAXEL [Suspect]
     Active Substance: PACLITAXEL
     Dosage: 68 MG, QW
     Route: 042
     Dates: start: 20160303, end: 20160310
  11. PACLITAXEL [Suspect]
     Active Substance: PACLITAXEL
     Dosage: 102 MG, Q4W
     Route: 042
     Dates: start: 20160204, end: 20160218
  12. PACLITAXEL [Suspect]
     Active Substance: PACLITAXEL
     Dosage: 139 MG, Q4W
     Route: 042
     Dates: start: 20151210
  13. PACLITAXEL [Suspect]
     Active Substance: PACLITAXEL
     Dosage: 68 MG, QW
     Route: 042
     Dates: start: 20160303, end: 20160310
  14. PACLITAXEL [Suspect]
     Active Substance: PACLITAXEL
     Dosage: 68 MG, QW
     Route: 042
     Dates: start: 20160303, end: 20160310
  15. PACLITAXEL [Suspect]
     Active Substance: PACLITAXEL
     Dosage: 139 MG, Q4W
     Route: 042
     Dates: start: 20151210
  16. PACLITAXEL [Suspect]
     Active Substance: PACLITAXEL
     Dosage: 138 MG, Q4W
     Route: 042
     Dates: start: 20151203, end: 20151203
  17. PACLITAXEL [Suspect]
     Active Substance: PACLITAXEL
     Dosage: 139 MG, Q4W
     Route: 042
     Dates: start: 20151210
  18. PACLITAXEL [Suspect]
     Active Substance: PACLITAXEL
     Dosage: 102 MG, Q4W
     Route: 042
     Dates: start: 20160204, end: 20160218
  19. PACLITAXEL [Suspect]
     Active Substance: PACLITAXEL
     Dosage: 138 MG, QMO (EVERY 4 WEEKS)
     Route: 042
     Dates: start: 20151203, end: 20160203
  20. PACLITAXEL [Suspect]
     Active Substance: PACLITAXEL
     Dosage: 102 MG, QW
     Route: 042
     Dates: start: 20160303, end: 20160310
  21. PACLITAXEL [Suspect]
     Active Substance: PACLITAXEL
     Dosage: 138 MG, Q4W
     Route: 042
     Dates: start: 20151203, end: 20160203
  22. PACLITAXEL [Suspect]
     Active Substance: PACLITAXEL
     Dosage: 138 MG, QMO (EVERY 4 WEEKS)
     Route: 042
     Dates: start: 20151203, end: 20160203
  23. PACLITAXEL [Suspect]
     Active Substance: PACLITAXEL
     Dosage: 102 MG, Q4W
     Route: 042
     Dates: start: 20160204, end: 20160218
  24. PACLITAXEL [Suspect]
     Active Substance: PACLITAXEL
     Dosage: 139 MG, Q4W
     Route: 042
     Dates: start: 20151210
  25. PACLITAXEL [Suspect]
     Active Substance: PACLITAXEL
     Dosage: 102 MG, Q4W
     Route: 042
     Dates: start: 20160204, end: 20160218
  26. PACLITAXEL [Suspect]
     Active Substance: PACLITAXEL
     Dosage: 102 MG, QW
     Route: 042
     Dates: start: 20160303, end: 20160310
  27. PACLITAXEL [Suspect]
     Active Substance: PACLITAXEL
     Dosage: 68 MG, QW
     Route: 042
     Dates: start: 20160303, end: 20160310
  28. PACLITAXEL [Suspect]
     Active Substance: PACLITAXEL
     Dosage: 134 MG, Q4W
     Route: 042
     Dates: start: 20151210
  29. PACLITAXEL [Suspect]
     Active Substance: PACLITAXEL
     Dosage: 102 MG, Q4W
     Route: 042
     Dates: start: 20160204, end: 20160218
  30. PACLITAXEL [Suspect]
     Active Substance: PACLITAXEL
     Dosage: 125 MG, Q4W
     Route: 042
     Dates: start: 20160204, end: 20160218
  31. PACLITAXEL [Suspect]
     Active Substance: PACLITAXEL
     Dosage: 68 MG, QW
     Route: 042
     Dates: start: 20160310
  32. PACLITAXEL [Suspect]
     Active Substance: PACLITAXEL
     Dosage: 134 MG, Q4W
     Route: 042
     Dates: start: 20151210
  33. PACLITAXEL [Suspect]
     Active Substance: PACLITAXEL
     Dosage: 138 MG, Q4W
     Route: 042
     Dates: start: 20151203, end: 20160203
  34. PACLITAXEL [Suspect]
     Active Substance: PACLITAXEL
     Dosage: 125 MG, Q4W
     Route: 042
     Dates: start: 20160204, end: 20160218
  35. PACLITAXEL [Suspect]
     Active Substance: PACLITAXEL
     Dosage: 120 MG, Q4W
     Route: 042
     Dates: start: 20160204, end: 20160218
  36. PACLITAXEL [Suspect]
     Active Substance: PACLITAXEL
     Dosage: 120 MG, QMO (EVERY 4 WEEKS)
     Route: 042
     Dates: start: 20151210
  37. PACLITAXEL [Suspect]
     Active Substance: PACLITAXEL
     Dosage: 139 MG, Q4W
     Route: 041
     Dates: start: 20151210
  38. PACLITAXEL [Suspect]
     Active Substance: PACLITAXEL
     Dosage: 120 MG, Q4W
     Route: 042
     Dates: start: 20160204
  39. PACLITAXEL [Suspect]
     Active Substance: PACLITAXEL
     Dosage: 44.6 MG, EVERY 4 DAYS, 34.75 MG CD, 884 MG, 4.92857142 MG
     Route: 042
     Dates: start: 20151210
  40. PACLITAXEL [Suspect]
     Active Substance: PACLITAXEL
     Dosage: 138 MG, Q4W (MONTHLY)
     Route: 042
     Dates: start: 20151203, end: 20160203
  41. PACLITAXEL [Suspect]
     Active Substance: PACLITAXEL
     Dosage: 120 MG, Q4W
     Route: 042
     Dates: start: 20151210
  42. PACLITAXEL [Suspect]
     Active Substance: PACLITAXEL
     Dosage: 120 MG, Q4W (MONTHLY, EVERY 4 WEEKS)
     Route: 042
     Dates: start: 20160204, end: 20160218
  43. PACLITAXEL [Suspect]
     Active Substance: PACLITAXEL
     Dosage: 120 MG, Q4W (120 MILLIGRAM, 34.75 MG CD, 884 MG, 4.92857142 MG)(CUMULATIVE DOSE TO FIRST REACTION: 2
     Route: 042
     Dates: start: 20160204, end: 20160218
  44. PACLITAXEL [Suspect]
     Active Substance: PACLITAXEL
     Dosage: 120 MG, Q4W (MONTHLY, EVERY 4 W EEKS (34.75 MG CD,)884 MG, 4.92857142 MG; CUMULATIVE)
     Route: 042
     Dates: start: 20160204, end: 20160218
  45. PACLITAXEL [Suspect]
     Active Substance: PACLITAXEL
     Dosage: 125 MG, Q4W (34.75 MG CD, 884 MG, 4.92857142 MG)
     Route: 065
     Dates: start: 20160204
  46. PACLITAXEL [Suspect]
     Active Substance: PACLITAXEL
     Dosage: 139 MG, Q4W
     Route: 042
     Dates: start: 20151210
  47. PACLITAXEL [Suspect]
     Active Substance: PACLITAXEL
     Dosage: 139 MG, Q28D (Q4W )
     Route: 042
     Dates: start: 20151210
  48. PACLITAXEL [Suspect]
     Active Substance: PACLITAXEL
     Dosage: 120 MG, QW
     Route: 065
     Dates: start: 20151210
  49. PACLITAXEL [Suspect]
     Active Substance: PACLITAXEL
     Dosage: 68 MG, QW
     Route: 042
     Dates: start: 20160303, end: 20160310
  50. PACLITAXEL [Suspect]
     Active Substance: PACLITAXEL
     Dosage: 44.6 MG (EVERY 4 DAYS, 34.75 MG CD, 884 MG, 4.92857142 MG)
     Route: 042
     Dates: start: 20151210
  51. DOCETAXEL [Suspect]
     Active Substance: DOCETAXEL
     Indication: Product used for unknown indication
     Dosage: 124 MG, Q3W (PREVIOUS CUMULATIVE DOSE: 147.61905 MG)
     Route: 042
     Dates: start: 20151106, end: 20151106
  52. DOCETAXEL [Suspect]
     Active Substance: DOCETAXEL
     Dosage: 124 MG, Q2W
     Route: 042
     Dates: start: 20151106, end: 20151106
  53. DOCETAXEL [Suspect]
     Active Substance: DOCETAXEL
     Dosage: 124 MG, Q2W (DOSE FORM: 120)
     Route: 042
     Dates: start: 20151106, end: 20151106
  54. PERTUZUMAB [Suspect]
     Active Substance: PERTUZUMAB
     Indication: Breast cancer metastatic
     Dosage: 840 MG, TOTAL
     Route: 042
     Dates: start: 20151105, end: 20151105
  55. PERTUZUMAB [Suspect]
     Active Substance: PERTUZUMAB
     Dosage: 840 MG (SINGLE (LOADING DOSE))
     Route: 042
     Dates: start: 20151105, end: 20151105
  56. PERTUZUMAB [Suspect]
     Active Substance: PERTUZUMAB
     Dosage: 840 MG, Q3W (LOADING DOSE)
     Route: 042
     Dates: start: 20151105, end: 20151105
  57. PERTUZUMAB [Suspect]
     Active Substance: PERTUZUMAB
     Dosage: 420 MG (MAINTENANCE DOSE)
     Route: 042
     Dates: start: 20151203
  58. PERTUZUMAB [Suspect]
     Active Substance: PERTUZUMAB
     Dosage: 420 MG, Q3W (DRUG INTERVAL)
     Route: 042
     Dates: start: 20151203
  59. PERTUZUMAB [Suspect]
     Active Substance: PERTUZUMAB
     Dosage: 420 MG, Q3W (MAINTENANCE DOSE)
     Route: 042
     Dates: start: 20151203
  60. PERTUZUMAB [Suspect]
     Active Substance: PERTUZUMAB
     Dosage: 420 MG, Q3W
     Route: 042
     Dates: start: 20151203
  61. HERCEPTIN [Suspect]
     Active Substance: TRASTUZUMAB
     Indication: Breast cancer metastatic
     Dosage: 450 MG, 1 TOTAL (LOADING DOSE)
     Route: 042
     Dates: start: 20151105, end: 20151105
  62. HERCEPTIN [Suspect]
     Active Substance: TRASTUZUMAB
     Dosage: 450 MG, TOTAL (LOADING DOSE, 16.6 MG, MAINTENANCE DOSE)
     Route: 042
     Dates: start: 20151105, end: 20151105
  63. HERCEPTIN [Suspect]
     Active Substance: TRASTUZUMAB
     Dosage: 450 MG, 1X; IN TOTAL
     Route: 042
     Dates: start: 20151105, end: 20151105
  64. HERCEPTIN [Suspect]
     Active Substance: TRASTUZUMAB
     Dosage: 350 MG, Q3W (MAINTENANCE DOSE)
     Route: 042
     Dates: start: 20151203, end: 20180427
  65. HERCEPTIN [Suspect]
     Active Substance: TRASTUZUMAB
     Dosage: 300 UNK; TIW
     Route: 065
     Dates: start: 20151203, end: 20180427
  66. HERCEPTIN [Suspect]
     Active Substance: TRASTUZUMAB
     Dosage: 300 UNK, TIW
     Route: 065
     Dates: start: 20151203, end: 20180427
  67. HERCEPTIN [Suspect]
     Active Substance: TRASTUZUMAB
     Dosage: UNK, QW
     Route: 065
     Dates: start: 20151203, end: 20180427
  68. HERCEPTIN [Suspect]
     Active Substance: TRASTUZUMAB
     Dosage: 350 MG, Q3W
     Route: 042
     Dates: start: 20151203, end: 20180427
  69. HERCEPTIN [Suspect]
     Active Substance: TRASTUZUMAB
     Dosage: 336 MG, Q3W
     Route: 042
     Dates: start: 20180518, end: 20190427
  70. HERCEPTIN [Suspect]
     Active Substance: TRASTUZUMAB
     Dosage: 336 MG, Q3W
     Route: 042
     Dates: start: 20180518, end: 20190427
  71. HERCEPTIN [Suspect]
     Active Substance: TRASTUZUMAB
     Dosage: 336 MG, TIW
     Route: 042
     Dates: start: 20180518
  72. ROSUVASTATIN [Concomitant]
     Active Substance: ROSUVASTATIN
     Indication: Product used for unknown indication
     Dosage: 5 MG
     Route: 048
     Dates: start: 201806, end: 201911
  73. ROSUVASTATIN [Concomitant]
     Active Substance: ROSUVASTATIN
     Dosage: 5 MG
     Route: 048
     Dates: start: 201806, end: 201911
  74. ROSUVASTATIN [Concomitant]
     Active Substance: ROSUVASTATIN
     Dosage: 5 MG
     Route: 048
     Dates: start: 201806, end: 201911
  75. ROSUVASTATIN [Concomitant]
     Active Substance: ROSUVASTATIN
     Dosage: 5 MG
     Route: 048
     Dates: start: 201806, end: 201911
  76. EZETIMIBE [Concomitant]
     Active Substance: EZETIMIBE
     Indication: Product used for unknown indication
     Dosage: UNK
     Route: 065
     Dates: start: 2019
  77. EZETIMIBE [Concomitant]
     Active Substance: EZETIMIBE
     Dosage: UNK
     Route: 048
     Dates: start: 2019
  78. EZETIMIBE [Concomitant]
     Active Substance: EZETIMIBE
     Dosage: UNK
     Route: 048
     Dates: start: 2019
  79. ASPIRIN [Concomitant]
     Active Substance: ASPIRIN
     Indication: Product used for unknown indication
     Dosage: 75 MG, QD
     Route: 048
     Dates: start: 20170523, end: 20170701
  80. ASPIRIN [Concomitant]
     Active Substance: ASPIRIN
     Dosage: UNK
     Route: 065
  81. ASPIRIN [Concomitant]
     Active Substance: ASPIRIN
     Dosage: UNK
     Route: 065
  82. ASPIRIN [Concomitant]
     Active Substance: ASPIRIN
     Indication: Product used for unknown indication
     Dosage: 75 MG, QD
     Route: 048
     Dates: start: 20170523, end: 20170701
  83. ASPIRIN [Concomitant]
     Active Substance: ASPIRIN
     Dosage: 75 MG, QD (CUMULATIVE DOSE TO FIRST REACTION: 40421.875 MG, 245 DOSE FORM) (CUM DOSE : 40421)
     Route: 048
     Dates: start: 20170701, end: 20170701
  84. ASPIRIN [Concomitant]
     Active Substance: ASPIRIN
     Dosage: 75 MG, QD  (75 MG, 1X/DAY)
     Route: 048
     Dates: start: 20170701
  85. ASPIRIN [Concomitant]
     Active Substance: ASPIRIN
     Dosage: 75 MG, QD
     Route: 048
     Dates: start: 20170523, end: 20170701
  86. ASPIRIN [Concomitant]
     Active Substance: ASPIRIN
     Dosage: 75 MG, QD (1X/DAY)
     Route: 065
     Dates: start: 20170523, end: 20170701
  87. ATORVASTATIN [Concomitant]
     Active Substance: ATORVASTATIN
     Indication: Product used for unknown indication
     Dosage: 40 MG, QD
     Route: 048
     Dates: start: 20170701
  88. ATORVASTATIN [Concomitant]
     Active Substance: ATORVASTATIN
     Dosage: 350 MG, Q3W (MAINTENANCE; CUM DOSE: 33.333332 MG)
     Route: 048
  89. ATORVASTATIN [Concomitant]
     Active Substance: ATORVASTATIN
     Dosage: 40 MG, QD
     Route: 065
     Dates: start: 20170701
  90. CETIRIZINE [Concomitant]
     Active Substance: CETIRIZINE HYDROCHLORIDE
     Indication: Prophylaxis
     Dosage: 10 MG (1 TABLET AT NIGHT FOR 3 DAYS)
     Route: 048
     Dates: start: 20151203
  91. CETIRIZINE [Concomitant]
     Active Substance: CETIRIZINE HYDROCHLORIDE
     Indication: Antiviral prophylaxis
     Dosage: UNK
     Route: 065
  92. CHLORHEXIDINE GLUCONATE [Concomitant]
     Active Substance: CHLORHEXIDINE GLUCONATE
     Indication: Prophylaxis
     Dosage: 4 DF, QD
     Route: 048
     Dates: start: 20151105
  93. CHLORHEXIDINE GLUCONATE [Concomitant]
     Active Substance: CHLORHEXIDINE GLUCONATE
     Dosage: UNK (0.25 DAY)
     Route: 065
     Dates: start: 20151105
  94. CLOPIDOGREL [Concomitant]
     Active Substance: CLOPIDOGREL BISULFATE
     Indication: Antiviral prophylaxis
     Dosage: UNK
     Route: 048
     Dates: start: 20170701
  95. CLOPIDOGREL [Concomitant]
     Active Substance: CLOPIDOGREL BISULFATE
     Dosage: UNK
     Route: 065
     Dates: start: 20170701
  96. DEXAMETHASONE [Concomitant]
     Active Substance: DEXAMETHASONE
     Indication: Prophylaxis
     Dosage: 8 MG
     Route: 048
     Dates: start: 20151105
  97. DEXAMETHASONE [Concomitant]
     Active Substance: DEXAMETHASONE
     Dosage: 8 MG
     Route: 048
     Dates: start: 20151105
  98. LANSOPRAZOLE [Concomitant]
     Active Substance: LANSOPRAZOLE
     Indication: Product used for unknown indication
     Dosage: 30 MG, QD
     Route: 065
     Dates: start: 20170312
  99. LANSOPRAZOLE [Concomitant]
     Active Substance: LANSOPRAZOLE
     Dosage: 30 MG, QD (CUMULATIVE DOSE TO FIRST REACTION: 14010.0 MG)
     Route: 048
     Dates: start: 20170312
  100. LOPERAMIDE [Concomitant]
     Active Substance: LOPERAMIDE
     Indication: Prophylaxis
     Dosage: 2 MG (4 TABLET TWICE A DAY FOR 3 DAYS)
     Route: 048
     Dates: start: 20151203
  101. LOPERAMIDE [Concomitant]
     Active Substance: LOPERAMIDE
     Indication: Prophylaxis against diarrhoea
     Dosage: 8 DOSAGE FORM (4 DF (0.5 PER DAY), BID FOR 3 DAYS (CUMULATIVE DOSE: 32.0 {DF})
     Route: 048
     Dates: start: 20151203
  102. LORATADINE [Concomitant]
     Active Substance: LORATADINE
     Indication: Product used for unknown indication
     Dosage: UNK
     Route: 048
     Dates: start: 20151119, end: 20151217
  103. LORATADINE [Concomitant]
     Active Substance: LORATADINE
     Dosage: UNK
     Route: 065
     Dates: start: 20151119, end: 20151217
  104. METOCLOPRAMIDE [Concomitant]
     Active Substance: METOCLOPRAMIDE
     Indication: Prophylaxis
     Dosage: 10 MG
     Route: 065
     Dates: start: 20151203
  105. METOCLOPRAMIDE [Concomitant]
     Active Substance: METOCLOPRAMIDE
     Indication: Prophylaxis of nausea and vomiting
     Dosage: 10 MG
     Route: 048
     Dates: start: 20151203
  106. RAMIPRIL [Concomitant]
     Active Substance: RAMIPRIL
     Indication: Product used for unknown indication
     Dosage: 1.25 MG, BID
     Route: 048
     Dates: start: 20170523
  107. RAMIPRIL [Concomitant]
     Active Substance: RAMIPRIL
     Dosage: 2.5 MG, QD (CUMULATIVE DOSE TO FIRST REACTION: 1347.3959 MG)
     Route: 048
     Dates: start: 20170523
  108. RAMIPRIL [Concomitant]
     Active Substance: RAMIPRIL
     Dosage: 1.25 MG (0.5 PER DAY)
     Route: 065
     Dates: start: 20170523
  109. RANITIDINE [Concomitant]
     Active Substance: RANITIDINE
     Indication: Prophylaxis
     Dosage: 150 MG (1 TABLET TWICE A DAY FOR 3 DAYS)
     Route: 065
     Dates: start: 20151203
  110. RANITIDINE [Concomitant]
     Active Substance: RANITIDINE
     Dosage: 600 MG
     Route: 065
  111. RANITIDINE [Concomitant]
     Active Substance: RANITIDINE
     Dosage: 300 MG (150 MG, BID FOR 3 DAYS (1 TABLET TW ICE A DAY FOR 3 DAYS; DOSE FORM: 245)
     Route: 048
     Dates: start: 20151203
  112. TRAMADOL HYDROCHLORIDE [Concomitant]
     Active Substance: TRAMADOL HYDROCHLORIDE
     Indication: Prophylaxis
     Dosage: 50 MG
     Route: 048
     Dates: start: 20151105
  113. ROSUVASTATIN CALCIUM [Concomitant]
     Active Substance: ROSUVASTATIN CALCIUM
     Indication: Product used for unknown indication
     Dosage: 5 MG
     Route: 048
     Dates: start: 201806, end: 201911
  114. ROSUVASTATIN CALCIUM [Concomitant]
     Active Substance: ROSUVASTATIN CALCIUM
     Dosage: UNK
     Route: 065

REACTIONS (36)
  - Urosepsis [Recovered/Resolved]
  - Urinary tract infection [Recovered/Resolved]
  - Anaphylactic reaction [Recovered/Resolved]
  - Tremor [Recovered/Resolved]
  - Tremor [Recovered/Resolved]
  - Cystitis noninfective [Recovered/Resolved]
  - Neuropathy peripheral [Recovered/Resolved]
  - Neuropathy peripheral [Recovered/Resolved]
  - Dyspnoea [Recovered/Resolved]
  - Palmar erythema [Recovered/Resolved]
  - Malaise [Recovered/Resolved]
  - Mucosal inflammation [Recovered/Resolved]
  - Hypersensitivity [Recovered/Resolved]
  - Fatigue [Recovered/Resolved]
  - Defaecation urgency [Recovered/Resolved]
  - Dysuria [Recovered/Resolved]
  - Chest discomfort [Recovered/Resolved]
  - Erythema [Recovered/Resolved]
  - Escherichia test positive [Not Recovered/Not Resolved]
  - Tendonitis [Not Recovered/Not Resolved]
  - Bacterial test positive [Recovered/Resolved]
  - Hypertension [Recovered/Resolved]
  - Diarrhoea [Recovered/Resolved]
  - Rash [Recovered/Resolved]
  - Diarrhoea [Recovered/Resolved]
  - Neuropathy peripheral [Recovered/Resolved]
  - Hypersensitivity [Recovered/Resolved]
  - Neuropathy peripheral [Recovered/Resolved]
  - Erythema [Recovered/Resolved]
  - Neuropathy peripheral [Recovered/Resolved]
  - Defaecation urgency [Recovered/Resolved]
  - Diarrhoea [Recovered/Resolved]
  - Diarrhoea [Recovered/Resolved]
  - Rash [Recovered/Resolved]
  - Fatigue [Recovered/Resolved]
  - Fatigue [Recovered/Resolved]

NARRATIVE: CASE EVENT DATE: 20151201
